FAERS Safety Report 8481280-2 (Version None)
Quarter: 2012Q3

REPORT INFORMATION
  Report Type: 
  Country: None (occurrence: None)
  Receive Date: 20120702
  Receipt Date: 20120626
  Transmission Date: 20120928
  Serious: Yes (Death, Hospitalization)
  Sender: FDA-Public Use
  Company Number: CO-PFIZER INC-2012154703

PATIENT
  Age: 50 Year
  Sex: Male

DRUGS (6)
  1. LYRICA [Suspect]
     Indication: MYELOID METAPLASIA
  2. ENALAPRIL [Concomitant]
     Indication: CARDIAC FAILURE
     Dosage: 5 MG, 2X/DAY (EACH 12 HOURS)
     Route: 048
     Dates: start: 20050101
  3. HALOPERIDOL [Concomitant]
     Dosage: UNK
  4. LYRICA [Suspect]
     Indication: HERPES ZOSTER
     Dosage: 300 MG, 3X/DAY
     Route: 048
     Dates: start: 20070101, end: 20120526
  5. HYDROXYUREA [Concomitant]
     Indication: MYELOID METAPLASIA
     Dosage: 500 MG, UNK
     Route: 065
  6. LANITOP [Concomitant]
     Indication: CARDIAC FAILURE
     Dosage: 10 DROPS DAILY
     Route: 048
     Dates: start: 20050101

REACTIONS (1)
  - MYELOID METAPLASIA [None]
